FAERS Safety Report 17569815 (Version 3)
Quarter: 2020Q3

REPORT INFORMATION
  Report Type: Report from Study
  Country: FR (occurrence: FR)
  Receive Date: 20200323
  Receipt Date: 20200722
  Transmission Date: 20201102
  Serious: Yes (Hospitalization)
  Sender: FDA-Public Use
  Company Number: FR-ROCHE-2567869

PATIENT
  Age: 74 Year
  Sex: Male
  Weight: 60.2 kg

DRUGS (9)
  1. BROMAZEPAM [Concomitant]
     Active Substance: BROMAZEPAM
  2. TRASTUZUMAB. [Suspect]
     Active Substance: TRASTUZUMAB
     Indication: HER2 POSITIVE GASTRIC CANCER
     Route: 041
     Dates: start: 20191112, end: 20191224
  3. LEUCOVORIN. [Suspect]
     Active Substance: LEUCOVORIN
     Indication: HER2 POSITIVE GASTRIC CANCER
     Route: 042
     Dates: start: 20191112, end: 20191224
  4. PERTUZUMAB. [Suspect]
     Active Substance: PERTUZUMAB
     Indication: HER2 POSITIVE GASTRIC CANCER
     Route: 042
     Dates: start: 20191112, end: 20191224
  5. FENTANYL. [Concomitant]
     Active Substance: FENTANYL
     Indication: PAIN
  6. PARACETAMOL [Concomitant]
     Active Substance: ACETAMINOPHEN
  7. DUPHALAC [Concomitant]
     Active Substance: LACTULOSE
  8. FLUOROURACIL. [Suspect]
     Active Substance: FLUOROURACIL
     Indication: HER2 POSITIVE GASTRIC CANCER
     Route: 042
     Dates: start: 20191102, end: 20191224
  9. OXALIPLATIN. [Suspect]
     Active Substance: OXALIPLATIN
     Indication: HER2 POSITIVE GASTRIC CANCER
     Route: 042
     Dates: start: 20191112, end: 20191224

REACTIONS (2)
  - Interstitial lung disease [Recovered/Resolved]
  - Pneumothorax [Recovered/Resolved]

NARRATIVE: CASE EVENT DATE: 20200123
